FAERS Safety Report 21091091 (Version 5)
Quarter: 2022Q4

REPORT INFORMATION
  Report Type: Report from Study
  Country: US (occurrence: US)
  Receive Date: 20220716
  Receipt Date: 20221219
  Transmission Date: 20230113
  Serious: Yes (Other)
  Sender: FDA-Public Use
  Company Number: US-NOVARTISPH-NVSC2022US161078

PATIENT
  Sex: Male

DRUGS (1)
  1. ENTRESTO [Suspect]
     Active Substance: SACUBITRIL\VALSARTAN
     Indication: Product used for unknown indication
     Dosage: 1 DOSAGE FORM, BID
     Route: 048
     Dates: start: 20210816

REACTIONS (10)
  - Cataract [Unknown]
  - Arthropod bite [Unknown]
  - Weight decreased [Unknown]
  - Muscle strain [Recovering/Resolving]
  - Gait disturbance [Recovering/Resolving]
  - Influenza [Unknown]
  - Heart rate decreased [Unknown]
  - Cough [Not Recovered/Not Resolved]
  - Hypotension [Unknown]
  - Dizziness [Unknown]
